FAERS Safety Report 25576608 (Version 1)
Quarter: 2025Q3

REPORT INFORMATION
  Report Type: Spontaneous
  Country: US (occurrence: US)
  Receive Date: 20250718
  Receipt Date: 20250718
  Transmission Date: 20251020
  Serious: Yes (Death)
  Sender: BAYER HEALTHCARE LLC
  Company Number: US-BAYER-2025A092153

PATIENT
  Age: 7 Month
  Sex: Male

DRUGS (1)
  1. AFRIN NO DRIP ORIGINAL PUMP MIST [Suspect]
     Active Substance: OXYMETAZOLINE HYDROCHLORIDE
     Route: 045

REACTIONS (3)
  - Death [Fatal]
  - Nasal disorder [None]
  - Product administered to patient of inappropriate age [None]
